FAERS Safety Report 11567110 (Version 1)
Quarter: 2015Q3

REPORT INFORMATION
  Report Type: Spontaneous
  Country: DE (occurrence: DE)
  Receive Date: 20150929
  Receipt Date: 20150929
  Transmission Date: 20151125
  Serious: No
  Sender: FDA-Public Use
  Company Number: DE-LUPIN PHARMACEUTICALS INC.-2015-01926

PATIENT
  Age: 30 Year
  Sex: Female

DRUGS (1)
  1. MUNALEA 20 0,02 MG/0,15 MG FILMTABLETTEN [Suspect]
     Active Substance: DESOGESTREL\ETHINYL ESTRADIOL
     Indication: PRODUCT USED FOR UNKNOWN INDICATION
     Route: 065
     Dates: end: 20150623

REACTIONS (3)
  - Foreign body sensation in eyes [Unknown]
  - Eye pruritus [Unknown]
  - Migraine [Unknown]
